FAERS Safety Report 5844014-3 (Version None)
Quarter: 2008Q3

REPORT INFORMATION
  Report Type: 
  Country: None (occurrence: None)
  Receive Date: 20080813
  Receipt Date: 20080804
  Transmission Date: 20090109
  Serious: Yes (Disabling)
  Sender: FDA-Public Use
  Company Number: GB-TEVA-175575ISR

PATIENT
  Age: 83 Year
  Sex: Female

DRUGS (5)
  1. PREDNISOLONE [Suspect]
     Route: 048
  2. CEFUROXIME [Suspect]
  3. OFLOXACIN [Suspect]
  4. PREDNISOLONE [Suspect]
     Route: 047
  5. TIMOLOL MALEATE [Suspect]

REACTIONS (1)
  - CORNEAL DEPOSITS [None]
